FAERS Safety Report 4532671-3 (Version None)
Quarter: 2004Q4

REPORT INFORMATION
  Report Type: 
  Country: None (occurrence: None)
  Receive Date: 20041221
  Receipt Date: 20040818
  Transmission Date: 20050328
  Serious: Yes (Death)
  Sender: FDA-Public Use
  Company Number: US-NOVOPROD-238792

PATIENT
  Age: 28 Year
  Sex: Male

DRUGS (1)
  1. NOVOSEVEN [Suspect]
     Indication: HEPATIC TRAUMA
     Dosage: 100 UG/KG, SINGLE
     Route: 042
     Dates: start: 20040810, end: 20040810

REACTIONS (1)
  - PROCEDURAL COMPLICATION [None]
